FAERS Safety Report 5164168-4 (Version None)
Quarter: 2006Q4

REPORT INFORMATION
  Report Type: 
  Country: None (occurrence: None)
  Receive Date: 20060918
  Receipt Date: 20051121
  Transmission Date: 20070319
  Serious: Yes (Death, Hospitalization)
  Sender: FDA-Public Use
  Company Number: US-JNJFOC-20051105816

PATIENT
  Age: 39 Year
  Sex: Male

DRUGS (1)
  1. TOPAMAX [Suspect]
     Indication: CONVULSION
     Dosage: 125 MG, IN 1 DAY, ORAL
     Route: 048
     Dates: start: 20040101

REACTIONS (2)
  - CONVULSION [None]
  - WEIGHT DECREASED [None]
